FAERS Safety Report 13921093 (Version 2)
Quarter: 2017Q3

REPORT INFORMATION
  Report Type: Spontaneous
  Country: BR (occurrence: BR)
  Receive Date: 20170830
  Receipt Date: 20170907
  Transmission Date: 20171127
  Serious: Yes (Other)
  Sender: FDA-Public Use
  Company Number: BR-PFIZER INC-2017262573

PATIENT
  Sex: Female

DRUGS (2)
  1. XALATAN [Suspect]
     Active Substance: LATANOPROST
     Dosage: UNK, 1X/DAY (EVERY 24 HOURS)
  2. XALATAN [Suspect]
     Active Substance: LATANOPROST
     Dosage: ONE DROP EACH EYE, EVERY 48 HOURS (ALTERNATE DAYS)

REACTIONS (6)
  - Product use issue [Unknown]
  - Headache [Unknown]
  - Tachycardia [Unknown]
  - Ocular hyperaemia [Unknown]
  - Open angle glaucoma [Unknown]
  - Eye pain [Unknown]
